FAERS Safety Report 25212289 (Version 2)
Quarter: 2025Q2

REPORT INFORMATION
  Report Type: Spontaneous
  Country: US (occurrence: US)
  Receive Date: 20250418
  Receipt Date: 20250506
  Transmission Date: 20250717
  Serious: Yes (Other)
  Sender: TEVA
  Company Number: US-TEVA-VS-3319902

PATIENT
  Age: 47 Year
  Sex: Female

DRUGS (2)
  1. ALPRAZOLAM [Suspect]
     Active Substance: ALPRAZOLAM
     Indication: Post-traumatic stress disorder
     Route: 048
     Dates: start: 2023
  2. ALPRAZOLAM [Suspect]
     Active Substance: ALPRAZOLAM
     Indication: Post-traumatic stress disorder
     Route: 048
     Dates: start: 2023

REACTIONS (7)
  - Hallucination [Unknown]
  - Drug ineffective for unapproved indication [Unknown]
  - Product use in unapproved indication [Unknown]
  - Multiple drug hypersensitivity [Not Recovered/Not Resolved]
  - Incorrect product administration duration [Unknown]
  - Wrong technique in product usage process [Unknown]
  - Middle insomnia [Unknown]

NARRATIVE: CASE EVENT DATE: 20230101
